FAERS Safety Report 19541162 (Version 1)
Quarter: 2021Q3

REPORT INFORMATION
  Report Type: Spontaneous
  Country: US (occurrence: US)
  Receive Date: 20210713
  Receipt Date: 20210713
  Transmission Date: 20211014
  Serious: Yes (Life-Threatening, Other)
  Sender: FDA-Public Use
  Company Number: None

PATIENT
  Age: 29 Year
  Sex: Male
  Weight: 134.55 kg

DRUGS (1)
  1. KETAMINE SHOT [Suspect]
     Active Substance: KETAMINE

REACTIONS (2)
  - Pain in extremity [None]
  - Injection site pain [None]
